FAERS Safety Report 20473890 (Version 2)
Quarter: 2024Q2

REPORT INFORMATION
  Report Type: Spontaneous
  Country: ES (occurrence: ES)
  Receive Date: 20220215
  Receipt Date: 20240413
  Transmission Date: 20240716
  Serious: Yes (Hospitalization, Other)
  Sender: FDA-Public Use
  Company Number: None

PATIENT
  Age: 56 Year
  Sex: Male

DRUGS (18)
  1. MYCOPHENOLATE MOFETIL [Suspect]
     Active Substance: MYCOPHENOLATE MOFETIL
     Indication: Immunosuppressant drug therapy
     Dosage: 500 MG, BID
     Route: 065
  2. TACROLIMUS [Suspect]
     Active Substance: TACROLIMUS
     Indication: Immunosuppressant drug therapy
     Dosage: TROUGH TARGET 6 NG/ML
     Route: 065
  3. VALGANCICLOVIR HYDROCHLORIDE [Suspect]
     Active Substance: VALGANCICLOVIR HYDROCHLORIDE
     Indication: Cytomegalovirus enterocolitis
  4. PREDNISONE [Suspect]
     Active Substance: PREDNISONE
     Indication: Immunosuppressant drug therapy
     Dosage: 5 MG, QD
     Route: 065
  5. POSACONAZOLE [Suspect]
     Active Substance: POSACONAZOLE
     Indication: Bronchopulmonary aspergillosis
     Route: 048
  6. BASILIXIMAB [Suspect]
     Active Substance: BASILIXIMAB
     Indication: Immunosuppressant drug therapy
     Route: 065
  7. MICAFUNGIN [Concomitant]
     Active Substance: MICAFUNGIN SODIUM
     Indication: Antifungal treatment
     Dosage: 350 MILLIGRAM, TWICE-WEEKLY
     Route: 042
  8. CEFEPIME [Concomitant]
     Active Substance: CEFEPIME HYDROCHLORIDE
  9. FLUCYTOSINE [Concomitant]
     Active Substance: FLUCYTOSINE
  10. SULFAMETHOXAZOLE\TRIMETHOPRIM [Concomitant]
     Active Substance: SULFAMETHOXAZOLE\TRIMETHOPRIM
     Dosage: 320/1600 MG
  11. ISAVUCONAZOLE [Concomitant]
     Active Substance: ISAVUCONAZOLE
  12. AMPHOTERICIN B [Concomitant]
     Active Substance: AMPHOTERICIN B
  13. VORICONAZOLE [Concomitant]
     Active Substance: VORICONAZOLE
  14. VORICONAZOLE [Concomitant]
     Active Substance: VORICONAZOLE
  15. POSACONAZOLE [Suspect]
     Active Substance: POSACONAZOLE
     Indication: Cerebral aspergillosis
  16. MICAFUNGIN [Concomitant]
     Active Substance: MICAFUNGIN SODIUM
     Indication: Bronchopulmonary aspergillosis
     Dosage: INTERMITTENT THERAPY
     Route: 042
  17. MICAFUNGIN [Concomitant]
     Active Substance: MICAFUNGIN SODIUM
     Indication: Cerebral aspergillosis
  18. PREDNISONE [Suspect]
     Active Substance: PREDNISONE
     Indication: Prophylaxis against transplant rejection
     Route: 065

REACTIONS (13)
  - Cerebral aspergillosis [Recovered/Resolved]
  - Abdominal pain [Unknown]
  - Bronchopulmonary aspergillosis [Recovered/Resolved]
  - Cerebral ventricle collapse [Recovered/Resolved]
  - Drug intolerance [Unknown]
  - Neutropenia [Recovered/Resolved]
  - Cytomegalovirus enterocolitis [Recovered/Resolved]
  - Aspergillus infection [Recovered/Resolved]
  - Central nervous system lesion [Recovered/Resolved]
  - Pyrexia [Recovered/Resolved]
  - Brain oedema [Recovered/Resolved]
  - Headache [Recovered/Resolved]
  - Pulmonary mass [Recovered/Resolved]
